FAERS Safety Report 10248136 (Version 1)
Quarter: 2014Q2

REPORT INFORMATION
  Report Type: Spontaneous
  Country: US (occurrence: US)
  Receive Date: 20140619
  Receipt Date: 20140619
  Transmission Date: 20141212
  Serious: No
  Sender: FDA-Public Use
  Company Number: US-TEVA-486668USA

PATIENT
  Sex: Female

DRUGS (2)
  1. NUVIGIL [Suspect]
     Indication: NARCOLEPSY
     Dosage: 300 MILLIGRAM DAILY;
  2. NUVIGIL [Suspect]
     Indication: SOMNOLENCE

REACTIONS (3)
  - Somnolence [Unknown]
  - Somnolence [Unknown]
  - Inappropriate schedule of drug administration [Unknown]
